FAERS Safety Report 10039925 (Version 2)
Quarter: 2014Q2

REPORT INFORMATION
  Report Type: Spontaneous
  Country: US (occurrence: US)
  Receive Date: 20140326
  Receipt Date: 20140411
  Transmission Date: 20141212
  Serious: Yes (Other)
  Sender: FDA-Public Use
  Company Number: US-PFIZER INC-2014086072

PATIENT
  Sex: Male

DRUGS (7)
  1. ZOLOFT [Suspect]
     Dosage: UNK
     Route: 064
     Dates: start: 20050505
  2. NASONEX [Concomitant]
     Dosage: UNK
     Route: 064
  3. REGLAN [Concomitant]
     Dosage: UNK
     Route: 064
  4. ROBITUSSIN-DM [Concomitant]
     Dosage: UNK
     Route: 064
  5. CLARITIN [Concomitant]
     Dosage: UNK
     Route: 064
  6. PRENATAL VITAMINS [Concomitant]
     Dosage: UNK
     Route: 064
  7. PROMETHAZINE [Concomitant]
     Dosage: UNK
     Route: 064

REACTIONS (2)
  - Maternal exposure during pregnancy [Unknown]
  - Premature baby [Unknown]
